FAERS Safety Report 10056258 (Version 2)
Quarter: 2014Q2

REPORT INFORMATION
  Report Type: Report from Study
  Country: JP (occurrence: JP)
  Receive Date: 20140403
  Receipt Date: 20140519
  Transmission Date: 20141212
  Serious: Yes (Death)
  Sender: FDA-Public Use
  Company Number: JP-PFIZER INC-2014089353

PATIENT
  Age: 62 Year
  Sex: Female
  Weight: 41 kg

DRUGS (11)
  1. REVATIO [Suspect]
     Indication: PULMONARY ARTERIAL HYPERTENSION
     Dosage: 20 MG, 2X/DAY
     Route: 048
     Dates: start: 20110922, end: 201109
  2. REVATIO [Suspect]
     Indication: COLLAGEN-VASCULAR DISEASE
     Dosage: 20 MG, 3X/DAY
     Route: 048
     Dates: start: 20110924
  3. BOSENTAN [Concomitant]
     Indication: PULMONARY HYPERTENSION
     Dosage: UNK
     Route: 048
     Dates: start: 20110805
  4. BERAPROST SODIUM [Concomitant]
     Indication: PULMONARY HYPERTENSION
     Dosage: UNK
     Dates: start: 20110819
  5. WARFARIN [Concomitant]
     Indication: PULMONARY HYPERTENSION
     Dosage: UNK
     Route: 048
     Dates: start: 20110831
  6. LOXONIN [Concomitant]
     Route: 048
  7. ENBREL ^WYETH PHARMA^ [Concomitant]
     Route: 058
  8. SPIRIVA [Concomitant]
     Route: 055
  9. BEZATOL [Concomitant]
     Route: 048
  10. ZETIA [Concomitant]
     Route: 048
  11. EVISTA [Concomitant]
     Route: 048

REACTIONS (2)
  - Cardiac failure acute [Fatal]
  - Acute respiratory failure [Fatal]
